FAERS Safety Report 15427519 (Version 1)
Quarter: 2018Q3

REPORT INFORMATION
  Report Type: Spontaneous
  Country: FR (occurrence: FR)
  Receive Date: 20180925
  Receipt Date: 20180925
  Transmission Date: 20181010
  Serious: Yes (Other)
  Sender: FDA-Public Use
  Company Number: PHHY2018FR101105

PATIENT
  Age: 35 Year
  Sex: Male

DRUGS (1)
  1. RITALINE [Suspect]
     Active Substance: METHYLPHENIDATE HYDROCHLORIDE
     Indication: NARCOLEPSY
     Dosage: 6 DF, QD
     Route: 065
     Dates: start: 2015

REACTIONS (4)
  - Brain injury [Unknown]
  - Psychiatric decompensation [Not Recovered/Not Resolved]
  - Anaesthesia [Unknown]
  - Narcolepsy [Unknown]
